FAERS Safety Report 9247697 (Version 2)
Quarter: 2013Q2

REPORT INFORMATION
  Report Type: Spontaneous
  Country: MX (occurrence: MX)
  Receive Date: 20130423
  Receipt Date: 20130606
  Transmission Date: 20140414
  Serious: No
  Sender: FDA-Public Use
  Company Number: MX-ELI_LILLY_AND_COMPANY-MX201304004844

PATIENT
  Age: 64 Year
  Sex: Female

DRUGS (6)
  1. HUMALOG 25% LISPRO, 75% NPL [Suspect]
     Indication: BLOOD GLUCOSE
     Dosage: UNK UNK, OTHER
     Dates: start: 2011
  2. PIOGLITAZONE [Concomitant]
     Dosage: 1 DF, EACH MORNING
  3. METFORMIN [Concomitant]
     Dosage: 500 MG, UNKNOWN
  4. METFORMIN [Concomitant]
     Dosage: 1000 MG, UNKNOWN
  5. METFORMIN [Concomitant]
     Dosage: 1 DF, BID
  6. METOPROLOL [Concomitant]

REACTIONS (2)
  - Blood glucose increased [Not Recovered/Not Resolved]
  - Drug effect decreased [Not Recovered/Not Resolved]
